FAERS Safety Report 4824445-0 (Version None)
Quarter: 2005Q4

REPORT INFORMATION
  Report Type: 
  Country: None (occurrence: None)
  Receive Date: 20051108
  Receipt Date: 20051021
  Transmission Date: 20060501
  Serious: Yes (Other)
  Sender: FDA-Public Use
  Company Number: TRP_0162_2005

PATIENT
  Age: 63 Year
  Sex: Female
  Weight: 68.0396 kg

DRUGS (4)
  1. RIBASPHERE [Suspect]
     Indication: HEPATITIS C
     Dosage: 1000 MG Q DAY PO
     Route: 048
     Dates: start: 20050324
  2. PEG-INTRON [Suspect]
     Indication: HEPATITIS C
     Dosage: 96 MCG QWK SC
     Route: 058
     Dates: start: 20050324
  3. EFFEXOR XR [Concomitant]
  4. TOPAMAX [Concomitant]

REACTIONS (3)
  - FATIGUE [None]
  - HYPOTHYROIDISM [None]
  - INSOMNIA [None]
